FAERS Safety Report 23800080 (Version 1)
Quarter: 2024Q2

REPORT INFORMATION
  Report Type: Spontaneous
  Country: US (occurrence: US)
  Receive Date: 20240430
  Receipt Date: 20240430
  Transmission Date: 20240715
  Serious: Yes (Hospitalization)
  Sender: FDA-Public Use
  Company Number: US-ABBVIE-5735645

PATIENT
  Sex: Female
  Weight: 48 kg

DRUGS (1)
  1. VRAYLAR [Suspect]
     Active Substance: CARIPRAZINE
     Indication: Depression
     Dosage: FORM STRENGTH: 1.5 MG
     Route: 048
     Dates: start: 202402, end: 20240323

REACTIONS (4)
  - Loss of consciousness [Recovered/Resolved]
  - Dysarthria [Recovered/Resolved]
  - Drooling [Recovered/Resolved]
  - Feeling drunk [Recovered/Resolved]

NARRATIVE: CASE EVENT DATE: 20240101
